FAERS Safety Report 13824291 (Version 1)
Quarter: 2017Q3

REPORT INFORMATION
  Report Type: Spontaneous
  Country: US (occurrence: US)
  Receive Date: 20170802
  Receipt Date: 20170802
  Transmission Date: 20171127
  Serious: No
  Sender: FDA-Public Use
  Company Number: US-009507513-1707USA011681

PATIENT
  Age: 25 Year
  Sex: Female
  Weight: 84.81 kg

DRUGS (2)
  1. NEXPLANON [Suspect]
     Active Substance: ETONOGESTREL
     Dosage: 1/EVERY 3 YEARS
     Route: 059
     Dates: start: 20170712
  2. NEXPLANON [Suspect]
     Active Substance: ETONOGESTREL
     Dosage: 1/EVERY 3 YEARS
     Route: 059
     Dates: start: 20170712, end: 20170712

REACTIONS (3)
  - Complication of device insertion [Recovered/Resolved]
  - No adverse event [Unknown]
  - Product quality issue [Unknown]

NARRATIVE: CASE EVENT DATE: 20170712
